FAERS Safety Report 25466116 (Version 1)
Quarter: 2025Q2

REPORT INFORMATION
  Report Type: Report from Study
  Country: US (occurrence: US)
  Receive Date: 20250623
  Receipt Date: 20250623
  Transmission Date: 20250717
  Serious: Yes (Hospitalization, Other)
  Sender: ALEXION PHARMACEUTICALS
  Company Number: US-AstraZeneca-CH-00895462A

PATIENT

DRUGS (1)
  1. STRENSIQ [Suspect]
     Active Substance: ASFOTASE ALFA
     Indication: Hypophosphatasia
     Route: 065

REACTIONS (8)
  - Myocardial infarction [Unknown]
  - Renal failure [Unknown]
  - Illness [Unknown]
  - Pain [Unknown]
  - Osteoporosis [Unknown]
  - Hypertension [Not Recovered/Not Resolved]
  - Left ventricular dysfunction [Unknown]
  - Flank pain [Unknown]
